FAERS Safety Report 8537426-0 (Version None)
Quarter: 2012Q3

REPORT INFORMATION
  Report Type: 
  Country: None (occurrence: None)
  Receive Date: 20120725
  Receipt Date: 20120629
  Transmission Date: 20120928
  Serious: No
  Sender: FDA-Public Use
  Company Number: US-MYLANLABS-2012S1012735

PATIENT
  Sex: Female

DRUGS (2)
  1. LIOTHYRONINE SODIUM [Suspect]
     Indication: HYPOTHYROIDISM
     Route: 048
     Dates: start: 20120101, end: 20120429
  2. LIOTHYRONINE SODIUM [Suspect]
     Route: 048
     Dates: start: 20120430

REACTIONS (3)
  - ALOPECIA [None]
  - INSOMNIA [None]
  - TREMOR [None]
